FAERS Safety Report 5605854-9 (Version None)
Quarter: 2008Q1

REPORT INFORMATION
  Report Type: 
  Country: None (occurrence: None)
  Receive Date: 20080129
  Receipt Date: 20080122
  Transmission Date: 20080703
  Serious: Yes (Hospitalization)
  Sender: FDA-Public Use
  Company Number: PHNU2008DE00677

PATIENT
  Age: 65 Year
  Sex: Female

DRUGS (1)
  1. IMMUNOSPORIN [Suspect]
     Indication: PRURIGO
     Dosage: 200 MG, BID
     Route: 048
     Dates: start: 20060124, end: 20060224

REACTIONS (5)
  - ARTERIAL OCCLUSIVE DISEASE [None]
  - ATRIAL FIBRILLATION [None]
  - FEMORAL ARTERY OCCLUSION [None]
  - HYPERTENSION [None]
  - PERIPHERAL EMBOLISM [None]
